FAERS Safety Report 7672618-4 (Version None)
Quarter: 2011Q3

REPORT INFORMATION
  Report Type: 
  Country: None (occurrence: None)
  Receive Date: 20110809
  Receipt Date: 20100811
  Transmission Date: 20111222
  Serious: Yes (Other)
  Sender: FDA-Public Use
  Company Number: US-BAYER-200934775NA

PATIENT
  Age: 50 Year
  Sex: Female
  Weight: 99.6 kg

DRUGS (12)
  1. MAGNEVIST [Suspect]
     Indication: NUCLEAR MAGNETIC RESONANCE IMAGING
  2. PROHANCE [Suspect]
     Indication: NUCLEAR MAGNETIC RESONANCE IMAGING
  3. OPTIMARK [Suspect]
     Indication: NUCLEAR MAGNETIC RESONANCE IMAGING
  4. PROHANCE [Suspect]
     Indication: ANGIOGRAM
  5. MULTIHANCE [Suspect]
     Indication: ANGIOGRAM
  6. MULTIHANCE [Suspect]
     Indication: NUCLEAR MAGNETIC RESONANCE IMAGING
  7. OMNISCAN [Suspect]
     Dates: start: 20060613, end: 20060613
  8. MAGNEVIST [Suspect]
     Indication: ANGIOGRAM
  9. OMNISCAN [Suspect]
     Indication: NUCLEAR MAGNETIC RESONANCE IMAGING
     Dates: start: 20050125, end: 20050125
  10. OMNISCAN [Suspect]
     Indication: FISTULOGRAM
     Dates: start: 20051122, end: 20051122
  11. OPTIMARK [Suspect]
     Indication: ANGIOGRAM
  12. OMNISCAN [Suspect]
     Indication: ANGIOGRAM
     Dates: start: 20040223, end: 20040223

REACTIONS (17)
  - ANXIETY [None]
  - NEPHROGENIC SYSTEMIC FIBROSIS [None]
  - SKIN FISSURES [None]
  - SKIN INDURATION [None]
  - SKIN PLAQUE [None]
  - MOTOR DYSFUNCTION [None]
  - SKIN TIGHTNESS [None]
  - JOINT RANGE OF MOTION DECREASED [None]
  - DYSSTASIA [None]
  - INSOMNIA [None]
  - DIPLEGIA [None]
  - MOBILITY DECREASED [None]
  - ARTERIOVENOUS FISTULA SITE COMPLICATION [None]
  - PAIN [None]
  - PAIN IN EXTREMITY [None]
  - OEDEMA PERIPHERAL [None]
  - ABASIA [None]
